FAERS Safety Report 19149814 (Version 6)
Quarter: 2021Q4

REPORT INFORMATION
  Report Type: Spontaneous
  Country: JP (occurrence: JP)
  Receive Date: 20210417
  Receipt Date: 20211105
  Transmission Date: 20220303
  Serious: Yes (Hospitalization, Other)
  Sender: FDA-Public Use
  Company Number: JP-UNITED THERAPEUTICS-UNT-2016-017824

PATIENT
  Age: 39 Year
  Sex: Female
  Weight: 54 kg

DRUGS (32)
  1. REMODULIN [Suspect]
     Active Substance: TREPROSTINIL
     Indication: Pulmonary arterial hypertension
     Dosage: UNK, CONTINUING
     Route: 058
     Dates: start: 20161028
  2. REMODULIN [Suspect]
     Active Substance: TREPROSTINIL
     Dosage: 0.004 ?G/KG, CONTINUING
     Route: 058
     Dates: start: 201610
  3. REMODULIN [Suspect]
     Active Substance: TREPROSTINIL
     Dosage: 0.033 ?G/KG, CONTINUING
     Route: 058
     Dates: start: 2016
  4. REMODULIN [Suspect]
     Active Substance: TREPROSTINIL
     Dosage: 0.069 ?G/KG, CONTINUING
     Route: 058
  5. REMODULIN [Suspect]
     Active Substance: TREPROSTINIL
     Dosage: 0.105 ?G/KG, CONTINUING
     Route: 058
     Dates: start: 2017, end: 20200910
  6. REMODULIN [Suspect]
     Active Substance: TREPROSTINIL
     Dosage: 0.227 ?G/KG, CONTINUING
     Route: 058
  7. REMODULIN [Suspect]
     Active Substance: TREPROSTINIL
     Dosage: 0.2157 ?G/KG, CONTINUING
     Route: 058
  8. REMODULIN [Suspect]
     Active Substance: TREPROSTINIL
     Dosage: 0.213 ?G/KG, CONTINUING
     Route: 058
     Dates: start: 2020, end: 20200909
  9. REMODULIN [Suspect]
     Active Substance: TREPROSTINIL
     Dosage: 0.206 ?G/KG, CONTINUING (AT A DOSING RATE OF 76.65 UG/H)
     Route: 058
     Dates: start: 20201031
  10. REMODULIN [Suspect]
     Active Substance: TREPROSTINIL
     Dosage: UNK UNK, CONTINUING
     Route: 058
     Dates: end: 20210307
  11. REMODULIN [Suspect]
     Active Substance: TREPROSTINIL
     Indication: Pulmonary arterial hypertension
     Dosage: 0.2469 ?G/KG, CONTINUING
     Route: 041
     Dates: start: 20200909
  12. REMODULIN [Suspect]
     Active Substance: TREPROSTINIL
     Dosage: 0.2157 ?G/KG, CONTINUING
     Route: 041
     Dates: start: 202009
  13. REMODULIN [Suspect]
     Active Substance: TREPROSTINIL
     Dosage: 0.206 ?G/KG, CONTINUING
     Route: 041
     Dates: start: 2020, end: 20201031
  14. REVATIO [Concomitant]
     Active Substance: SILDENAFIL CITRATE
     Indication: Pulmonary arterial hypertension
     Dosage: UNK
     Route: 048
     Dates: start: 200804, end: 20210114
  15. OPSUMIT [Concomitant]
     Active Substance: MACITENTAN
     Indication: Pulmonary arterial hypertension
     Dosage: UNK
     Route: 048
     Dates: start: 201603
  16. BERAPROST SODIUM [Concomitant]
     Active Substance: BERAPROST SODIUM
     Indication: Pulmonary arterial hypertension
     Dosage: UNK
     Route: 048
     Dates: start: 200905, end: 201610
  17. REBAMIPIDE [Concomitant]
     Active Substance: REBAMIPIDE
     Indication: Prophylaxis
     Dosage: 400 MG/DAY
     Route: 048
     Dates: start: 20161028, end: 20171026
  18. MIYA-BM [Concomitant]
     Active Substance: CLOSTRIDIUM BUTYRICUM SPORES STRAIN M-55
     Indication: Product used for unknown indication
     Dosage: 60 MG/DAY
     Route: 048
  19. LOPEMIN [Concomitant]
     Indication: Product used for unknown indication
     Dosage: 2 MG
     Route: 048
  20. BERBERINE\GERANIUM [Concomitant]
     Active Substance: BERBERINE\GERANIUM
     Indication: Product used for unknown indication
     Dosage: 3 DF/ DAY
     Route: 048
  21. LASIX [Concomitant]
     Active Substance: FUROSEMIDE
     Indication: Product used for unknown indication
     Dosage: 20 MG
     Route: 048
     Dates: end: 201612
  22. PRIMPERAN [Concomitant]
     Active Substance: METOCLOPRAMIDE HYDROCHLORIDE
     Indication: Prophylaxis
     Dosage: UNK
     Route: 048
     Dates: start: 20161029
  23. PRIMPERAN [Concomitant]
     Active Substance: METOCLOPRAMIDE HYDROCHLORIDE
     Dosage: UNK
     Route: 048
     Dates: start: 20170817
  24. LIDOCAINE [Concomitant]
     Active Substance: LIDOCAINE
     Indication: Prophylaxis
     Dosage: 18 MG
     Route: 062
     Dates: start: 20161102
  25. CLOBETASONE BUTYRATE [Concomitant]
     Active Substance: CLOBETASONE BUTYRATE
     Indication: Prophylaxis
     Dosage: UNK
     Route: 065
     Dates: start: 201611
  26. SODIUM PICOSULFATE [Concomitant]
     Active Substance: SODIUM PICOSULFATE
     Indication: Prophylaxis
     Dosage: UNK
     Route: 048
     Dates: start: 20171027
  27. AZOSEMIDE [Concomitant]
     Active Substance: AZOSEMIDE
     Indication: Product used for unknown indication
     Dosage: UNK
     Route: 048
     Dates: start: 20171026
  28. LOPERAMIDE HYDROCHLORIDE [Concomitant]
     Active Substance: LOPERAMIDE HYDROCHLORIDE
     Indication: Product used for unknown indication
     Dosage: 3 MG/DAY
     Route: 048
  29. METOCLOPRAMIDE [Concomitant]
     Active Substance: METOCLOPRAMIDE
     Indication: Prophylaxis
     Dosage: UNK
     Route: 048
  30. ADEMPAS [Concomitant]
     Active Substance: RIOCIGUAT
     Indication: Pulmonary arterial hypertension
     Dosage: UNK
     Route: 048
     Dates: start: 20210114
  31. FENTANYL [Concomitant]
     Active Substance: FENTANYL
     Indication: Prophylaxis
     Dosage: 5 MG/ DAY
     Route: 062
     Dates: start: 20180705, end: 202103
  32. UPTRAVI [Concomitant]
     Active Substance: SELEXIPAG
     Indication: Pulmonary arterial hypertension
     Dosage: UNK
     Route: 048
     Dates: start: 20210218

REACTIONS (13)
  - Pulmonary arteriovenous fistula [Recovering/Resolving]
  - Exposure during pregnancy [Recovered/Resolved]
  - Hypoxia [Recovering/Resolving]
  - Pulmonary hypertension [Recovering/Resolving]
  - Pseudomonas infection [Recovering/Resolving]
  - Pseudomonas infection [Recovering/Resolving]
  - Injection site pain [Recovering/Resolving]
  - Diarrhoea [Recovering/Resolving]
  - Injection site induration [Recovering/Resolving]
  - Injection site swelling [Unknown]
  - Dizziness [Recovering/Resolving]
  - Injection site erythema [Unknown]
  - Product dose omission issue [Unknown]

NARRATIVE: CASE EVENT DATE: 20161029
